FAERS Safety Report 24338105 (Version 2)
Quarter: 2024Q4

REPORT INFORMATION
  Report Type: Report from Study
  Country: TR (occurrence: TR)
  Receive Date: 20240919
  Receipt Date: 20241001
  Transmission Date: 20250115
  Serious: Yes (Death, Other)
  Sender: RANBAXY
  Company Number: TR-SUN PHARMACEUTICAL INDUSTRIES LTD-2024R1-468652

PATIENT
  Age: 72 Year

DRUGS (3)
  1. LENALIDOMIDE [Suspect]
     Active Substance: LENALIDOMIDE
     Indication: Non-Hodgkin^s lymphoma refractory
     Dosage: 20 MILLIGRAM D1-D14, EVERY 21 DAYS (3 CYCLES)
     Route: 065
  2. BENDAMUSTINE [Suspect]
     Active Substance: BENDAMUSTINE
     Indication: Non-Hodgkin^s lymphoma refractory
     Dosage: 90 MILLIGRAM/SQ. METER D1, D2, EVERY 21 DAYS (3 CYCLES)
     Route: 065
  3. OBINUTUZUMAB [Suspect]
     Active Substance: OBINUTUZUMAB
     Indication: Non-Hodgkin^s lymphoma refractory
     Dosage: 1000 MILLIGRAM, DAILY D1, EVERY 21 DAYS (3 CYCLES)
     Route: 065

REACTIONS (3)
  - Pneumococcal sepsis [Fatal]
  - Therapy partial responder [Unknown]
  - Cytopenia [Unknown]
